FAERS Safety Report 7512391-3 (Version None)
Quarter: 2011Q2

REPORT INFORMATION
  Report Type: 
  Country: None (occurrence: None)
  Receive Date: 20110531
  Receipt Date: 20110525
  Transmission Date: 20111010
  Serious: Yes (Death, Hospitalization)
  Sender: FDA-Public Use
  Company Number: HU-ABBOTT-11P-076-0725251-00

PATIENT
  Sex: Female
  Weight: 68 kg

DRUGS (1)
  1. ZEMPLAR [Suspect]
     Indication: RENAL FAILURE CHRONIC
     Dosage: DIALYSIS
     Route: 042
     Dates: start: 20110208, end: 20110509

REACTIONS (5)
  - ARTERIAL OCCLUSIVE DISEASE [None]
  - SEPSIS [None]
  - GANGRENE [None]
  - ANGIOPATHY [None]
  - CIRCULATORY COLLAPSE [None]
